FAERS Safety Report 9444511 (Version 1)
Quarter: 2013Q3

REPORT INFORMATION
  Report Type: Spontaneous
  Country: US (occurrence: None)
  Receive Date: 20130805
  Receipt Date: 20130805
  Transmission Date: 20140515
  Serious: Yes (Hospitalization)
  Sender: FDA-Public Use
  Company Number: ACO_37506_2013

PATIENT
  Age: 64 Year
  Sex: Female

DRUGS (8)
  1. TIZANIDINE [Suspect]
     Indication: PRODUCT USED FOR UNKNOWN INDICATION
  2. OXAPROZIN [Suspect]
     Indication: ARTHRITIS
  3. INTERFERON BETA [Suspect]
     Indication: MULTIPLE SCLEROSIS
     Route: 030
  4. HYDROCHLOROTHIAZIDE [Concomitant]
  5. LISINOPRIL (LISINOPRIL) [Concomitant]
  6. SIMVASTATIN (SIMVASTATIN) [Concomitant]
  7. CLONAZEPAM (CLONAZEPAM) [Concomitant]
  8. POLYETHYLENE GLYCOL (MACROGOL) [Concomitant]

REACTIONS (5)
  - Drug-induced liver injury [None]
  - Allergic hepatitis [None]
  - Hepatic necrosis [None]
  - Hepatic fibrosis [None]
  - Hepatotoxicity [None]
